FAERS Safety Report 13121993 (Version 1)
Quarter: 2017Q1

REPORT INFORMATION
  Report Type: Spontaneous
  Country: US (occurrence: US)
  Receive Date: 20170116
  Receipt Date: 20170116
  Transmission Date: 20170428
  Serious: Yes (Other)
  Sender: FDA-Public Use
  Company Number: None

PATIENT
  Age: 59 Year
  Sex: Male

DRUGS (14)
  1. FENOFIBRATE. [Concomitant]
     Active Substance: FENOFIBRATE
  2. ASA [Concomitant]
     Active Substance: ASPIRIN
  3. AMLODIPINE [Concomitant]
     Active Substance: AMLODIPINE BESYLATE
  4. GLIPIZIDE. [Concomitant]
     Active Substance: GLIPIZIDE
  5. LISINOPRIL. [Concomitant]
     Active Substance: LISINOPRIL
  6. LEVOPHTHROXINE [Concomitant]
  7. VICTOZA [Concomitant]
     Active Substance: LIRAGLUTIDE
  8. HUMULIN R [Concomitant]
     Active Substance: INSULIN HUMAN
  9. HUMIRA [Suspect]
     Active Substance: ADALIMUMAB
     Indication: PSORIASIS
     Dosage: ?          OTHER FREQUENCY:Q 2 WEEKS;?
     Route: 058
     Dates: start: 20161221, end: 20170116
  10. ALFUZOSIN [Concomitant]
     Active Substance: ALFUZOSIN
  11. ATENOLOL. [Concomitant]
     Active Substance: ATENOLOL
  12. FINASTERIDE. [Concomitant]
     Active Substance: FINASTERIDE
  13. PANTOPRAZOLE [Concomitant]
     Active Substance: PANTOPRAZOLE SODIUM
  14. METFORMIN [Concomitant]
     Active Substance: METFORMIN HYDROCHLORIDE

REACTIONS (1)
  - Rectal haemorrhage [None]

NARRATIVE: CASE EVENT DATE: 20170114
